FAERS Safety Report 8853745 (Version 1)
Quarter: 2012Q4

REPORT INFORMATION
  Report Type: 
  Country: SE (occurrence: SE)
  Receive Date: 20121022
  Receipt Date: 20121022
  Transmission Date: 20130627
  Serious: Yes (Hospitalization, Other)
  Sender: FDA-Public Use
  Company Number: SE-ABBOTT-12P-150-0990832-00

PATIENT
  Sex: Female

DRUGS (2)
  1. HUMIRA [Suspect]
     Indication: PSORIASIS
     Dates: start: 20100331, end: 20100913
  2. HUMIRA [Suspect]
     Dates: start: 20120201

REACTIONS (5)
  - Psoriasis [Unknown]
  - Drug specific antibody present [Unknown]
  - Diverticulitis [Unknown]
  - Pyrexia [Unknown]
  - Asthma [Unknown]
